FAERS Safety Report 18442187 (Version 1)
Quarter: 2020Q4

REPORT INFORMATION
  Report Type: Spontaneous
  Country: US (occurrence: US)
  Receive Date: 20201029
  Receipt Date: 20201029
  Transmission Date: 20210114
  Serious: No
  Sender: FDA-Public Use
  Company Number: US-SA-2020SA304864

PATIENT

DRUGS (3)
  1. DUPIXENT [Suspect]
     Active Substance: DUPILUMAB
     Indication: DERMATITIS ATOPIC
     Dosage: 300 MG, 1X
     Route: 058
     Dates: start: 20201023, end: 20201023
  2. PREDNISONE. [Concomitant]
     Active Substance: PREDNISONE
  3. KENALOG [Concomitant]
     Active Substance: TRIAMCINOLONE ACETONIDE

REACTIONS (4)
  - Chest pain [Unknown]
  - Alopecia [Unknown]
  - Skin burning sensation [Unknown]
  - Injection site pain [Unknown]

NARRATIVE: CASE EVENT DATE: 202010
